FAERS Safety Report 4603573-9 (Version None)
Quarter: 2005Q1

REPORT INFORMATION
  Report Type: 
  Country: None (occurrence: None)
  Receive Date: 20050308
  Receipt Date: 20050220
  Transmission Date: 20050727
  Serious: Yes (Death)
  Sender: FDA-Public Use
  Company Number: 10359

PATIENT

DRUGS (1)
  1. METHOTREXATE [Suspect]
     Indication: NON-HODGKIN'S LYMPHOMA
     Dosage: 1 G/M2 OTH IV
     Route: 042

REACTIONS (1)
  - TUMOUR LYSIS SYNDROME [None]
